FAERS Safety Report 6937450-5 (Version None)
Quarter: 2010Q3

REPORT INFORMATION
  Report Type: 
  Country: None (occurrence: None)
  Receive Date: 20100823
  Receipt Date: 20100823
  Transmission Date: 20110219
  Serious: No
  Sender: FDA-Public Use
  Company Number: None

PATIENT
  Age: 70 Year
  Sex: Male
  Weight: 93.441 kg

DRUGS (1)
  1. AMOXICILLIN [Suspect]

REACTIONS (1)
  - RASH [None]
